FAERS Safety Report 15195941 (Version 2)
Quarter: 2018Q3

REPORT INFORMATION
  Report Type: Spontaneous
  Country: US (occurrence: US)
  Receive Date: 20180725
  Receipt Date: 20180816
  Transmission Date: 20181010
  Serious: No
  Sender: FDA-Public Use
  Company Number: US-PFIZER INC-2016206175

PATIENT
  Age: 8 Year
  Sex: Male
  Weight: 34 kg

DRUGS (5)
  1. GENOTROPIN [Suspect]
     Active Substance: SOMATROPIN
     Dosage: 1.4 MG, DAILY
     Dates: start: 20130107
  2. GENOTROPIN [Suspect]
     Active Substance: SOMATROPIN
     Indication: CONGENITAL ANOMALY OF ADRENAL GLAND
     Dosage: 12 MG, UNK
  3. GENOTROPIN [Suspect]
     Active Substance: SOMATROPIN
     Indication: GROWTH FAILURE
     Dosage: 1.4 MG, DAILY
     Dates: start: 20120107
  4. GENOTROPIN [Suspect]
     Active Substance: SOMATROPIN
     Dosage: 1.4 MG, 1X/DAY
     Dates: start: 2013
  5. GENOTROPIN [Suspect]
     Active Substance: SOMATROPIN
     Indication: CORNELIA DE LANGE SYNDROME
     Dosage: 12 MG, UNK

REACTIONS (2)
  - Headache [Recovered/Resolved]
  - Product use in unapproved indication [Unknown]

NARRATIVE: CASE EVENT DATE: 2013
